FAERS Safety Report 5482770-7 (Version None)
Quarter: 2007Q4

REPORT INFORMATION
  Report Type: 
  Country: None (occurrence: None)
  Receive Date: 20071011
  Receipt Date: 20070928
  Transmission Date: 20080405
  Serious: Yes (Other)
  Sender: FDA-Public Use
  Company Number: US-PFIZER INC-2007060874

PATIENT
  Sex: Male
  Weight: 83.9 kg

DRUGS (24)
  1. NEURONTIN [Suspect]
     Indication: HERPES ZOSTER
     Dosage: DAILY DOSE:3600MG
     Dates: start: 20070628, end: 20070701
  2. NEURONTIN [Suspect]
     Indication: NEURALGIA
  3. LYRICA [Suspect]
     Indication: HERPES ZOSTER
  4. LYRICA [Suspect]
     Indication: PAIN
  5. VALTREX [Suspect]
  6. LIDODERM [Suspect]
  7. CYMBALTA [Suspect]
  8. VOLTAREN [Concomitant]
  9. TYLENOL EXTRA-STRENGTH [Concomitant]
  10. PRAVACHOL [Concomitant]
  11. ZETIA [Concomitant]
  12. XANAX [Concomitant]
  13. WELLBUTRIN SR [Concomitant]
     Indication: DEPRESSION
  14. ALTACE [Concomitant]
  15. ZYRTEC [Concomitant]
  16. ZOCOR [Concomitant]
  17. ALPHAGAN [Concomitant]
  18. TRAVATAN [Concomitant]
  19. ANTIGLAUCOMA PREPARATIONS AND MIOTICS [Concomitant]
  20. ACETYLSALICYLIC ACID [Concomitant]
  21. FLONASE [Concomitant]
     Dosage: TEXT:2 SPRAYS IN EACH NOSTRIL DAILY
     Route: 045
  22. SAW PALMETTO [Concomitant]
  23. VITAMIN CAP [Concomitant]
  24. OMEGA 3 [Concomitant]

REACTIONS (5)
  - ACTIVITIES OF DAILY LIVING IMPAIRED [None]
  - CORONARY ARTERY DISEASE [None]
  - DIPLOPIA [None]
  - PAIN [None]
  - SPINAL COLUMN STENOSIS [None]
